FAERS Safety Report 21819727 (Version 2)
Quarter: 2023Q1

REPORT INFORMATION
  Report Type: Spontaneous
  Country: US (occurrence: None)
  Receive Date: 20230104
  Receipt Date: 20230209
  Transmission Date: 20230417
  Serious: No
  Sender: FDA-Public Use
  Company Number: 2022A410535

PATIENT
  Sex: Female
  Weight: 63.5 kg

DRUGS (1)
  1. SYMBICORT [Suspect]
     Active Substance: BUDESONIDE\FORMOTEROL FUMARATE DIHYDRATE
     Indication: Asthma
     Dosage: 80MCG/4.5MCG VIA INHALATION, 2 INHALATIONS TWICE DAILY
     Route: 055

REACTIONS (6)
  - Dyspnoea [Unknown]
  - Weight increased [Unknown]
  - Arthritis [Not Recovered/Not Resolved]
  - Product dose omission issue [Unknown]
  - Wrong technique in device usage process [Unknown]
  - Device malfunction [Unknown]

NARRATIVE: CASE EVENT DATE: 20220101
